FAERS Safety Report 15861383 (Version 2)
Quarter: 2019Q2

REPORT INFORMATION
  Report Type: Spontaneous
  Country: CZ (occurrence: CZ)
  Receive Date: 20190124
  Receipt Date: 20190516
  Transmission Date: 20190711
  Serious: Yes (Life-Threatening, Hospitalization, Other)
  Sender: FDA-Public Use
  Company Number: CZ-TEVA-2019-CZ-1002685

PATIENT
  Age: 55 Year
  Sex: Female

DRUGS (4)
  1. LAGOSA [Concomitant]
     Active Substance: DIETARY SUPPLEMENT\HERBALS\MILK THISTLE
     Dosage: THE DOSAGE:1-1-1.
  2. KALNORMIN [Concomitant]
     Active Substance: POTASSIUM CHLORIDE
     Dosage: THE DOSAGE: 1-0-1.
  3. PENBENE [Suspect]
     Active Substance: PENICILLIN V
     Indication: UPPER RESPIRATORY TRACT INFECTION
     Dosage: EXP 02-19?JUST 1 TABLET ADMINISTERED
     Route: 048
     Dates: start: 20180213, end: 20180213
  4. CARDILAN [Concomitant]
     Dosage: THE DOSAGE: 1-0-1.

REACTIONS (8)
  - Fall [Recovered/Resolved with Sequelae]
  - Erythema [Recovered/Resolved]
  - Dermatitis allergic [Recovered/Resolved]
  - Dyspnoea [Recovered/Resolved]
  - Lip swelling [Recovered/Resolved]
  - Altered state of consciousness [Recovered/Resolved]
  - Anaphylactic shock [Recovered/Resolved]
  - Pruritus generalised [Recovered/Resolved]

NARRATIVE: CASE EVENT DATE: 20180213
